FAERS Safety Report 20436383 (Version 1)
Quarter: 2022Q1

REPORT INFORMATION
  Report Type: Report from Study
  Country: US (occurrence: None)
  Receive Date: 20220207
  Receipt Date: 20220207
  Transmission Date: 20220423
  Serious: Yes (Hospitalization, Other)
  Sender: FDA-Public Use
  Company Number: US-Merck Healthcare KGaA-9238912

PATIENT
  Age: 32 Year
  Sex: Female

DRUGS (3)
  1. REBIF [Suspect]
     Active Substance: INTERFERON BETA-1A
     Indication: Multiple sclerosis
     Route: 058
     Dates: start: 20210310, end: 20220107
  2. TYLENOL [Concomitant]
     Active Substance: ACETAMINOPHEN
     Indication: Premedication
  3. ADDERALL [Concomitant]
     Active Substance: AMPHETAMINE ASPARTATE\AMPHETAMINE SULFATE\DEXTROAMPHETAMINE SACCHARATE\DEXTROAMPHETAMINE SULFATE
     Indication: Anxiety

REACTIONS (12)
  - Complication of pregnancy [Unknown]
  - Prolonged labour [Recovered/Resolved]
  - Acute kidney injury [Not Recovered/Not Resolved]
  - Bradycardia [Unknown]
  - Dehydration [Unknown]
  - Procedural pain [Unknown]
  - Hypertension [Unknown]
  - Anxiety [Unknown]
  - Oral herpes [Recovering/Resolving]
  - Maternal exposure during pregnancy [Recovered/Resolved]
  - Normal newborn [Recovered/Resolved]
  - Product administration interrupted [Unknown]

NARRATIVE: CASE EVENT DATE: 20210101
